FAERS Safety Report 6658140-2 (Version None)
Quarter: 2010Q1

REPORT INFORMATION
  Report Type: 
  Country: None (occurrence: None)
  Receive Date: 20100330
  Receipt Date: 20100325
  Transmission Date: 20100710
  Serious: Yes (Hospitalization)
  Sender: FDA-Public Use
  Company Number: A0808317A

PATIENT
  Age: 67 Year
  Sex: Male
  Weight: 98.6 kg

DRUGS (9)
  1. AVANDIA [Suspect]
     Dosage: 8MG PER DAY
     Route: 048
     Dates: start: 20020923, end: 20070410
  2. TRICOR [Concomitant]
  3. COREG [Concomitant]
  4. LIPITOR [Concomitant]
  5. GLUCOVANCE [Concomitant]
  6. ZETIA [Concomitant]
  7. NEXIUM [Concomitant]
  8. LEVOTHYROXINE SODIUM [Concomitant]
  9. PLETAL [Concomitant]

REACTIONS (2)
  - CORONARY ARTERY DISEASE [None]
  - MYOCARDIAL INFARCTION [None]
